FAERS Safety Report 9401536 (Version 1)
Quarter: 2013Q3

REPORT INFORMATION
  Report Type: Report from Study
  Country: DE (occurrence: DE)
  Receive Date: 20130716
  Receipt Date: 20130716
  Transmission Date: 20140515
  Serious: Yes (Life-Threatening, Hospitalization)
  Sender: FDA-Public Use
  Company Number: DE-ROCHE-1075764

PATIENT
  Age: 44 Year
  Sex: Female
  Weight: 92.8 kg

DRUGS (9)
  1. NOVAMINSULFON [Suspect]
     Indication: PRODUCT USED FOR UNKNOWN INDICATION
     Route: 065
  2. PROTHYRID [Concomitant]
  3. TELFAST [Concomitant]
     Indication: URTICARIA
     Route: 065
     Dates: start: 2007
  4. LEVOTHYROXIN [Concomitant]
     Indication: AUTOIMMUNE THYROIDITIS
     Dosage: 1-0-0
     Route: 065
  5. CALCIUM ACETATE [Concomitant]
     Indication: GASTRIC BYPASS
     Dosage: 1-0-0
     Route: 065
     Dates: start: 2010
  6. FOLSAV [Concomitant]
     Indication: GASTRIC BYPASS
     Dosage: 1.5-0-0
     Route: 065
     Dates: start: 2010
  7. HYDROCHLOROTHIAZIDE [Concomitant]
     Dosage: IF NEEDED
     Route: 065
     Dates: start: 2007
  8. VITAMIN B12 [Concomitant]
     Indication: GASTRIC BYPASS
     Route: 065
     Dates: start: 2010
  9. OMALIZUMAB [Suspect]
     Indication: CHRONIC SPONTANEOUS URTICARIA
     Dosage: DATE OF MOST RECENT DOSE PRIOR TO SAE : 10/JAN/2012
     Route: 058
     Dates: start: 20110823

REACTIONS (1)
  - Anaphylactic reaction [Recovered/Resolved]
